FAERS Safety Report 6135913-6 (Version None)
Quarter: 2009Q1

REPORT INFORMATION
  Report Type: 
  Country: None (occurrence: None)
  Receive Date: 20090327
  Receipt Date: 20090316
  Transmission Date: 20090719
  Serious: Yes (Hospitalization, Other)
  Sender: FDA-Public Use
  Company Number: ES-JNJFOC-20090304668

PATIENT
  Sex: Male

DRUGS (8)
  1. REMICADE [Suspect]
     Indication: SPONDYLOARTHROPATHY
     Route: 042
  2. STEROID [Concomitant]
  3. ACE INHIBITOR [Concomitant]
  4. STATINS [Concomitant]
  5. DEFLAZACORT [Concomitant]
  6. CLOPIDOGREL [Concomitant]
  7. IRON [Concomitant]
  8. RANITIDINE [Concomitant]

REACTIONS (4)
  - ACUTE CORONARY SYNDROME [None]
  - HERNIA REPAIR [None]
  - MYOCARDIAL INFARCTION [None]
  - UPPER GASTROINTESTINAL HAEMORRHAGE [None]
